FAERS Safety Report 7472512-8 (Version None)
Quarter: 2011Q2

REPORT INFORMATION
  Report Type: 
  Country: None (occurrence: None)
  Receive Date: 20110502
  Receipt Date: 20110415
  Transmission Date: 20111010
  Serious: Yes (Death)
  Sender: FDA-Public Use
  Company Number: 031326

PATIENT

DRUGS (1)
  1. LACOSAMIDE [Suspect]
     Indication: STATUS EPILEPTICUS
     Dosage: (INTRAVENOUS)
     Route: 042

REACTIONS (1)
  - STATUS EPILEPTICUS [None]
